FAERS Safety Report 7275220-1 (Version None)
Quarter: 2011Q1

REPORT INFORMATION
  Report Type: 
  Country: None (occurrence: None)
  Receive Date: 20110204
  Receipt Date: 20110131
  Transmission Date: 20110831
  Serious: Yes (Death)
  Sender: FDA-Public Use
  Company Number: PHHY2011CA07484

PATIENT
  Sex: Female

DRUGS (6)
  1. ACLASTA [Suspect]
     Indication: OSTEOPOROSIS
     Dosage: 5 MG
     Route: 042
     Dates: start: 20090505
  2. CITALOPRAM HYDROBROMIDE [Concomitant]
     Dosage: UNK
  3. CALCIUM [Concomitant]
     Dosage: UNK
  4. VITAMIN D [Concomitant]
     Dosage: UNK
  5. PANTOLOC [Concomitant]
     Dosage: UNK
  6. MICARDIS [Concomitant]
     Dosage: UNK

REACTIONS (3)
  - MALAISE [None]
  - ABDOMINAL PAIN [None]
  - BURSITIS [None]
